FAERS Safety Report 12265914 (Version 1)
Quarter: 2016Q2

REPORT INFORMATION
  Report Type: Spontaneous
  Country: JP (occurrence: JP)
  Receive Date: 20160413
  Receipt Date: 20160413
  Transmission Date: 20160815
  Serious: Yes (Death, Other)
  Sender: FDA-Public Use
  Company Number: JP-BAUSCH-BL-2016-008408

PATIENT
  Age: 35 Year
  Sex: Male

DRUGS (6)
  1. METHOTREXATE [Suspect]
     Active Substance: METHOTREXATE
     Indication: METASTASES TO MENINGES
     Dosage: TWICE A WEEK FOR THE FIRST TWO WEEKS, AND THEN REPEATED ONCE A WEEK THEREAFTER
     Route: 037
  2. CYTARABINE. [Suspect]
     Active Substance: CYTARABINE
     Indication: METASTASES TO MENINGES
     Dosage: TWICE A WEEK FOR THE FIRST TWO WEEKS, AND THEN REPEATED ONCE A WEEK THEREAFTER
     Route: 037
  3. GIMERACIL [Suspect]
     Active Substance: GIMERACIL
     Indication: GASTRIC CANCER
     Route: 048
  4. CISPLATIN. [Suspect]
     Active Substance: CISPLATIN
     Indication: GASTRIC CANCER
     Route: 042
  5. IRINOTECAN [Suspect]
     Active Substance: IRINOTECAN
     Indication: GASTRIC CANCER
     Route: 042
  6. PREDNISOLONE. [Suspect]
     Active Substance: PREDNISOLONE
     Indication: METASTASES TO MENINGES
     Dosage: TWICE A WEEK FOR THE FIRST TWO WEEKS, AND THEN REPEATED ONCE A WEEK THEREAFTER
     Route: 037

REACTIONS (3)
  - Drug ineffective [Fatal]
  - Renal disorder [Unknown]
  - Leukoencephalopathy [Unknown]
